FAERS Safety Report 9627231 (Version 1)
Quarter: 2013Q4

REPORT INFORMATION
  Report Type: Not Available
  Country: US (occurrence: US)
  Receive Date: 20131016
  Receipt Date: 20131016
  Transmission Date: 20140711
  Serious: No
  Sender: FDA-Public Use
  Company Number: US-LUNDBECK-DKLU1084529

PATIENT
  Sex: Female
  Weight: 45.36 kg

DRUGS (5)
  1. SABRIL (TABLET) [Suspect]
     Indication: PARTIAL SEIZURES
     Route: 048
     Dates: start: 20120821
  2. SABRIL (TABLET) [Suspect]
     Indication: INFANTILE SPASMS
     Route: 048
     Dates: start: 201208
  3. TRILEPTAL [Concomitant]
     Indication: PARTIAL SEIZURES
     Route: 048
  4. TRILEPTAL [Concomitant]
     Route: 048
  5. TRILEPTAL [Concomitant]
     Route: 048

REACTIONS (5)
  - Unevaluable event [Unknown]
  - Speech disorder [Unknown]
  - Unevaluable event [Unknown]
  - Diplopia [Unknown]
  - Tremor [Unknown]
